FAERS Safety Report 10192583 (Version 1)
Quarter: 2014Q2

REPORT INFORMATION
  Report Type: Spontaneous
  Country: CH (occurrence: CH)
  Receive Date: 20140523
  Receipt Date: 20140523
  Transmission Date: 20141212
  Serious: Yes (Hospitalization, Other)
  Sender: FDA-Public Use
  Company Number: CH-ACTAVIS-2014-10952

PATIENT
  Age: 45 Year
  Sex: Male

DRUGS (5)
  1. VENLAFAXINE (UNKNOWN) [Suspect]
     Indication: DEPRESSION
     Dosage: 75 MG, DAILY
     Route: 065
  2. SUMATRIPTAN [Interacting]
     Indication: HEADACHE
     Dosage: 1 DF, Q4H
     Route: 065
  3. CODEINE [Concomitant]
     Indication: PAIN
     Dosage: 30 MG, UNK
     Route: 065
  4. PARACETAMOL [Concomitant]
     Indication: PAIN
     Dosage: 500 MG, UNK
     Route: 065
  5. METAMIZOLE [Concomitant]
     Indication: PAIN
     Dosage: 500 MG, UNK
     Route: 065

REACTIONS (3)
  - Serotonin syndrome [Recovered/Resolved]
  - Drug interaction [Recovered/Resolved]
  - Accidental overdose [Recovered/Resolved]
